FAERS Safety Report 9054646 (Version 2)
Quarter: 2013Q2

REPORT INFORMATION
  Report Type: Other
  Country: IT (occurrence: IT)
  Receive Date: 20130208
  Receipt Date: 20130520
  Transmission Date: 20140414
  Serious: Yes (Other)
  Sender: FDA-Public Use
  Company Number: IT-MILLENNIUM PHARMACEUTICALS, INC.-2013-00849

PATIENT
  Sex: 0

DRUGS (5)
  1. VELCADE [Suspect]
     Indication: PLASMA CELL MYELOMA
     Dosage: 1.3 MG/M2, CYCLIC
     Route: 065
     Dates: start: 20080501, end: 20090401
  2. REVLIMID [Suspect]
     Indication: PLASMA CELL MYELOMA
     Dosage: 10 MG, CYCLIC
     Route: 048
     Dates: start: 20110928, end: 20120405
  3. CYCLOPHOSPHAMIDE [Suspect]
     Indication: PLASMA CELL MYELOMA
     Dosage: UNK
     Route: 065
     Dates: start: 20110928, end: 20120405
  4. DEXAMETHASONE [Suspect]
     Dosage: UNK
     Route: 048
     Dates: start: 20110928, end: 20120405
  5. MELPHALAN [Suspect]
     Indication: PRODUCT USED FOR UNKNOWN INDICATION
     Dosage: 140 MG, UNK
     Dates: start: 20081201, end: 20090401

REACTIONS (1)
  - Myelodysplastic syndrome [Recovering/Resolving]
